FAERS Safety Report 4376275-4 (Version None)
Quarter: 2004Q2

REPORT INFORMATION
  Report Type: 
  Country: None (occurrence: None)
  Receive Date: 20040608
  Receipt Date: 20030224
  Transmission Date: 20050107
  Serious: Yes (Other)
  Sender: FDA-Public Use
  Company Number: 200310645BCC

PATIENT
  Age: 71 Year
  Sex: Male
  Weight: 113.3993 kg

DRUGS (3)
  1. ALEVE [Suspect]
     Indication: LOCALISED OSTEOARTHRITIS
     Dosage: 220 MG, IRR, ORAL
     Route: 048
     Dates: start: 20021101
  2. GLUCOPHAGE [Concomitant]
  3. PRINZIDE [Concomitant]

REACTIONS (1)
  - HAEMATOCHEZIA [None]
